FAERS Safety Report 8121028-4 (Version None)
Quarter: 2012Q1

REPORT INFORMATION
  Report Type: 
  Country: None (occurrence: None)
  Receive Date: 20120208
  Receipt Date: 20120126
  Transmission Date: 20120608
  Serious: Yes (Hospitalization, Other)
  Sender: FDA-Public Use
  Company Number: JP-NAPPMUNDI-MAG-2011-0001831

PATIENT
  Sex: Female

DRUGS (9)
  1. SYMBICORT [Concomitant]
     Dosage: UNK
     Route: 055
     Dates: start: 20111111, end: 20111114
  2. EPINASTINE HYDROCHLORIDE [Concomitant]
     Dosage: 20 MG, DAILY
     Route: 048
     Dates: start: 20111111, end: 20111114
  3. EMPYNASE                           /00394801/ [Concomitant]
     Dosage: 3 TABLET, DAILY
     Route: 048
     Dates: start: 20111111, end: 20111114
  4. CLARITHROMYCIN [Interacting]
     Indication: PNEUMONIA MYCOPLASMAL
     Dosage: 400 MG, DAILY
     Route: 048
     Dates: start: 20111111, end: 20111114
  5. ONON [Interacting]
     Indication: PRODUCT USED FOR UNKNOWN INDICATION
     Dosage: 225 MG, DAILY
     Route: 048
     Dates: start: 20111111, end: 20111114
  6. HUSCODE [Concomitant]
     Dosage: 6 TABLET, DAILY
     Route: 048
     Dates: start: 20111111, end: 20111114
  7. THEOPHYLLINE [Suspect]
     Indication: PNEUMONIA MYCOPLASMAL
     Dosage: 400 MG, DAILY
     Route: 048
     Dates: start: 20111111, end: 20111114
  8. CHINESE HERBAL MEDICINE [Interacting]
     Indication: PRODUCT USED FOR UNKNOWN INDICATION
     Route: 065
  9. SINGULAIR [Concomitant]
     Dosage: 10 MG, DAILY
     Route: 048
     Dates: start: 20111111, end: 20111114

REACTIONS (6)
  - JOINT RANGE OF MOTION DECREASED [None]
  - DRUG INTERACTION [None]
  - ERYTHEMA [None]
  - PAIN IN EXTREMITY [None]
  - RHABDOMYOLYSIS [None]
  - JOINT SWELLING [None]
